FAERS Safety Report 11889116 (Version 1)
Quarter: 2016Q1

REPORT INFORMATION
  Report Type: Spontaneous
  Country: US (occurrence: US)
  Receive Date: 20160105
  Receipt Date: 20160105
  Transmission Date: 20160526
  Serious: Yes (Hospitalization)
  Sender: FDA-Public Use
  Company Number: PHEH2015US027548

PATIENT
  Sex: Male
  Weight: 81.19 kg

DRUGS (1)
  1. VOTRIENT [Suspect]
     Active Substance: PAZOPANIB HYDROCHLORIDE
     Indication: SOFT TISSUE SARCOMA
     Dosage: 800 MG/KG, QD
     Route: 048
     Dates: start: 20151023

REACTIONS (2)
  - Pyrexia [Unknown]
  - Pain in extremity [Unknown]
